FAERS Safety Report 5679646-9 (Version None)
Quarter: 2008Q1

REPORT INFORMATION
  Report Type: 
  Country: None (occurrence: None)
  Receive Date: 20080325
  Receipt Date: 20080320
  Transmission Date: 20080703
  Serious: Yes (Hospitalization)
  Sender: FDA-Public Use
  Company Number: BE-ABBOTT-08P-013-0442359-00

PATIENT
  Sex: Male

DRUGS (2)
  1. KALETRA [Suspect]
     Indication: HIV INFECTION
  2. SAQUINAVIR MESILATE [Concomitant]
     Indication: HIV INFECTION

REACTIONS (2)
  - SOFT TISSUE INFECTION [None]
  - STAPHYLOCOCCAL SEPSIS [None]
